FAERS Safety Report 24425417 (Version 2)
Quarter: 2025Q3

REPORT INFORMATION
  Report Type: Report from Study
  Country: US (occurrence: US)
  Receive Date: 20241011
  Receipt Date: 20250803
  Transmission Date: 20251021
  Serious: Yes (Other)
  Sender: ALEXION PHARMACEUTICALS
  Company Number: US-AstraZeneca-CH-00718602A

PATIENT
  Sex: Male
  Weight: 86.621 kg

DRUGS (1)
  1. CALQUENCE [Suspect]
     Active Substance: ACALABRUTINIB
     Indication: Chronic lymphocytic leukaemia (in remission)
     Dates: start: 20231223

REACTIONS (2)
  - Internal haemorrhage [Unknown]
  - Rash [Unknown]
